FAERS Safety Report 4290001-9 (Version None)
Quarter: 2004Q1

REPORT INFORMATION
  Report Type: 
  Country: None (occurrence: None)
  Receive Date: 20040206
  Receipt Date: 20040112
  Transmission Date: 20041129
  Serious: Yes (Life-Threatening)
  Sender: FDA-Public Use
  Company Number: GB-JNJFOC-20040200718

PATIENT
  Age: 67 Year
  Sex: Male

DRUGS (4)
  1. ABCIXIMAB (ABCIXIMAB) INJECTION [Suspect]
     Indication: ACUTE CORONARY SYNDROME
     Dosage: INJECTION
     Dates: start: 20040108, end: 20040108
  2. CLOPIDOGREL BISULFATE [Concomitant]
  3. ASPIRIN [Concomitant]
  4. HEPARIN [Concomitant]

REACTIONS (2)
  - MEDICATION ERROR [None]
  - PERICARDIAL HAEMORRHAGE [None]
